FAERS Safety Report 7130681-3 (Version None)
Quarter: 2010Q4

REPORT INFORMATION
  Report Type: 
  Country: None (occurrence: None)
  Receive Date: 20101201
  Receipt Date: 20101118
  Transmission Date: 20110411
  Serious: Yes (Hospitalization)
  Sender: FDA-Public Use
  Company Number: US-ELI_LILLY_AND_COMPANY-US201011005282

PATIENT
  Age: 68 Year
  Sex: Male

DRUGS (2)
  1. HUMALOG [Suspect]
     Indication: DIABETES MELLITUS
     Dosage: UNK, AS NEEDED
     Dates: start: 20081101
  2. LANTUS [Concomitant]

REACTIONS (4)
  - DEHYDRATION [None]
  - INCORRECT DOSE ADMINISTERED [None]
  - INFECTION [None]
  - SEPTIC SHOCK [None]
